FAERS Safety Report 6133574-3 (Version None)
Quarter: 2009Q1

REPORT INFORMATION
  Report Type: 
  Country: None (occurrence: None)
  Receive Date: 20090326
  Receipt Date: 20090319
  Transmission Date: 20090719
  Serious: Yes (Other)
  Sender: FDA-Public Use
  Company Number: US-ASTRAZENECA-2009UW07101

PATIENT
  Age: 80 Year
  Sex: Female
  Weight: 90.7 kg

DRUGS (2)
  1. CRESTOR [Suspect]
     Indication: BLOOD CHOLESTEROL INCREASED
     Route: 048
  2. GLUCOSAMINE [Concomitant]

REACTIONS (2)
  - BACK PAIN [None]
  - KNEE ARTHROPLASTY [None]
